FAERS Safety Report 23142306 (Version 3)
Quarter: 2023Q4

REPORT INFORMATION
  Report Type: Spontaneous
  Country: AU (occurrence: AU)
  Receive Date: 20231103
  Receipt Date: 20231218
  Transmission Date: 20240109
  Serious: Yes (Other)
  Sender: FDA-Public Use
  Company Number: AU-ORGANON-O2311AUS000140

PATIENT
  Age: 55 Year
  Sex: Female
  Weight: 69.5 kg

DRUGS (1)
  1. CELESTONE CHRONODOSE [Suspect]
     Active Substance: BETAMETHASONE ACETATE\BETAMETHASONE SODIUM PHOSPHATE
     Indication: Facet joint syndrome
     Dosage: KEPT 2 INJECTIONS BOTH WITH 1 CC INTO HER SPINK IN THE LEFT AND RIGHT FACET JOINT (ALSO STATED 1 ML
     Dates: start: 20231023

REACTIONS (4)
  - Suicidal ideation [Unknown]
  - Anxiety [Not Recovered/Not Resolved]
  - Agoraphobia [Unknown]
  - Muscle fatigue [Unknown]

NARRATIVE: CASE EVENT DATE: 20230101
